FAERS Safety Report 9008083 (Version 1)
Quarter: 2013Q1

REPORT INFORMATION
  Report Type: Spontaneous
  Country: US (occurrence: US)
  Receive Date: 20130111
  Receipt Date: 20130111
  Transmission Date: 20140127
  Serious: Yes (Other)
  Sender: FDA-Public Use
  Company Number: US-009507513-0907USA03644

PATIENT
  Age: 36 Year
  Sex: Female
  Weight: 78.18 kg

DRUGS (2)
  1. SINGULAIR [Suspect]
     Indication: ASTHMA
     Dosage: 10MG 1 TABLET PO ORAL
     Route: 048
     Dates: start: 20081013, end: 20081014
  2. SINGULAIR [Suspect]
     Indication: CONDITION AGGRAVATED

REACTIONS (7)
  - Anxiety [Unknown]
  - Asthenia [Unknown]
  - Heart rate increased [Unknown]
  - Insomnia [Unknown]
  - Paranoia [Unknown]
  - Restlessness [Unknown]
  - Tremor [Unknown]
